FAERS Safety Report 7149479-5 (Version None)
Quarter: 2010Q4

REPORT INFORMATION
  Report Type: 
  Country: None (occurrence: None)
  Receive Date: 20101209
  Receipt Date: 20101116
  Transmission Date: 20110411
  Serious: No
  Sender: FDA-Public Use
  Company Number: US-PFIZER INC-2010148509

PATIENT
  Sex: Male

DRUGS (1)
  1. ADVIL PM [Suspect]
     Indication: INSOMNIA
     Dosage: UNK

REACTIONS (4)
  - DEPENDENCE [None]
  - DRUG WITHDRAWAL SYNDROME [None]
  - PRURITUS GENERALISED [None]
  - URTICARIA [None]
